FAERS Safety Report 5885968-9 (Version None)
Quarter: 2008Q3

REPORT INFORMATION
  Report Type: 
  Country: None (occurrence: None)
  Receive Date: 20080917
  Receipt Date: 20080805
  Transmission Date: 20090109
  Serious: Yes (Other)
  Sender: FDA-Public Use
  Company Number: US-BAYER-200828955NA

PATIENT
  Sex: Female

DRUGS (1)
  1. YAZ [Suspect]
     Indication: POLYCYSTIC OVARIES
     Route: 015

REACTIONS (4)
  - ABORTION SPONTANEOUS [None]
  - DRUG DOSE OMISSION [None]
  - PREGNANCY ON ORAL CONTRACEPTIVE [None]
  - TONSILLECTOMY [None]
